FAERS Safety Report 19761130 (Version 1)
Quarter: 2021Q3

REPORT INFORMATION
  Report Type: Spontaneous
  Country: JP (occurrence: JP)
  Receive Date: 20210830
  Receipt Date: 20210830
  Transmission Date: 20211014
  Serious: Yes (Hospitalization)
  Sender: FDA-Public Use
  Company Number: JP-GLAXOSMITHKLINE-JP2021179024

PATIENT
  Sex: Female

DRUGS (3)
  1. RELVAR ELLIPTA [Suspect]
     Active Substance: FLUTICASONE FUROATE\VILANTEROL TRIFENATATE
     Dosage: UNK
  2. AMBROXOL HYDROCHLORIDE TABLETS [Concomitant]
     Dosage: UNK, BEFORE BEDTIME
  3. MONTELUKAST OD TABLET [Concomitant]
     Dosage: UNK, BEFORE BEDTIME

REACTIONS (1)
  - Hospitalisation [Unknown]
